FAERS Safety Report 5400564-5 (Version None)
Quarter: 2007Q3

REPORT INFORMATION
  Report Type: 
  Country: None (occurrence: None)
  Receive Date: 20070730
  Receipt Date: 20070718
  Transmission Date: 20080115
  Serious: Yes (Other)
  Sender: FDA-Public Use
  Company Number: HQWYE128619JUL07

PATIENT
  Sex: Male
  Weight: 82.63 kg

DRUGS (5)
  1. CORDARONE [Suspect]
     Indication: ARRHYTHMIA
     Dosage: 200 MG THEN 100 MG DAILY
     Route: 048
     Dates: end: 20070714
  2. ISOSORBIDE DINITRATE [Concomitant]
  3. NORVASC [Concomitant]
  4. PLAQUENIL [Concomitant]
  5. TOPROL-XL [Concomitant]

REACTIONS (11)
  - ALOPECIA [None]
  - AORTIC OCCLUSION [None]
  - ARTERIAL STENT INSERTION [None]
  - BURNING SENSATION [None]
  - ERECTILE DYSFUNCTION [None]
  - PAIN IN EXTREMITY [None]
  - SEXUAL DYSFUNCTION [None]
  - SKIN EXFOLIATION [None]
  - SUICIDAL IDEATION [None]
  - THYROID DISORDER [None]
  - VASCULAR STENT INSERTION [None]
